FAERS Safety Report 5786737-0 (Version None)
Quarter: 2008Q2

REPORT INFORMATION
  Report Type: 
  Country: None (occurrence: None)
  Receive Date: 20080619
  Receipt Date: 20080422
  Transmission Date: 20081010
  Serious: No
  Sender: FDA-Public Use
  Company Number: US-1166079

PATIENT
  Age: 14 Year
  Sex: Female
  Weight: 45.3597 kg

DRUGS (4)
  1. PATADAY SOLUTION [Suspect]
     Indication: HYPERSENSITIVITY
     Dosage: DROPS IN EACH EYE (OPHTHALMIC)
     Route: 047
  2. ASCORBIC ACID [Concomitant]
  3. CLARITIN [Concomitant]
  4. MULTI-VITAMINS [Concomitant]

REACTIONS (2)
  - DYSGEUSIA [None]
  - PHARYNGITIS [None]
